FAERS Safety Report 8559521 (Version 3)
Quarter: 2012Q4

REPORT INFORMATION
  Report Type: 
  Country: FR (occurrence: FR)
  Receive Date: 20120514
  Receipt Date: 20121226
  Transmission Date: 20130627
  Serious: Yes (Life-Threatening, Hospitalization)
  Sender: FDA-Public Use
  Company Number: FR-SP-2012-04679

PATIENT
  Age: 44 Year
  Sex: Male

DRUGS (1)
  1. IMMUCYST 81 MG [Suspect]
     Indication: BLADDER CANCER
     Route: 043
     Dates: start: 201111, end: 20120123

REACTIONS (14)
  - Disseminated tuberculosis [Recovered/Resolved]
  - Renal failure [Recovered/Resolved]
  - Hypothermia [Recovered/Resolved]
  - Metabolic acidosis [Recovered/Resolved]
  - Asthenia [Recovered/Resolved]
  - Stomatitis haemorrhagic [Recovered/Resolved]
  - Oesophagitis [Recovered/Resolved]
  - Hiatus hernia [Recovered/Resolved]
  - Gastritis [Recovered/Resolved]
  - Gastric ulcer [Recovered/Resolved]
  - Dysphagia [Recovered/Resolved]
  - Odynophagia [Recovered/Resolved]
  - Diarrhoea [Recovered/Resolved]
  - Vomiting [Recovered/Resolved]
